FAERS Safety Report 7203934-8 (Version None)
Quarter: 2010Q4

REPORT INFORMATION
  Report Type: 
  Country: None (occurrence: None)
  Receive Date: 20101230
  Receipt Date: 20101227
  Transmission Date: 20110411
  Serious: No
  Sender: FDA-Public Use
  Company Number: US-PFIZER INC-2010179681

PATIENT
  Sex: Male
  Weight: 95.238 kg

DRUGS (1)
  1. VIAGRA [Suspect]
     Indication: ERECTILE DYSFUNCTION
     Dosage: 25 MG, WEEKLY
     Route: 048
     Dates: start: 20100101, end: 20101201

REACTIONS (1)
  - TINNITUS [None]
